FAERS Safety Report 12547865 (Version 2)
Quarter: 2016Q3

REPORT INFORMATION
  Report Type: Spontaneous
  Country: GB (occurrence: GB)
  Receive Date: 20160712
  Receipt Date: 20160804
  Transmission Date: 20161109
  Serious: Yes (Other)
  Sender: FDA-Public Use
  Company Number: GB-AUROBINDO-AUR-APL-2016-07546

PATIENT
  Age: 70 Year
  Sex: Female

DRUGS (1)
  1. CIPROFLOXACIN. [Suspect]
     Active Substance: CIPROFLOXACIN
     Indication: INFECTION PROPHYLAXIS
     Dosage: 750 MG, TWO TIMES A DAY

REACTIONS (7)
  - Oedema [Recovered/Resolved]
  - Tendon rupture [Recovered/Resolved]
  - Weight bearing difficulty [Recovered/Resolved]
  - Arthralgia [Recovered/Resolved]
  - Normochromic normocytic anaemia [Recovered/Resolved]
  - Tendon disorder [Recovering/Resolving]
  - Groin pain [Recovered/Resolved]
